APPROVED DRUG PRODUCT: SODIUM SUCCINATE
Active Ingredient: SODIUM SUCCINATE
Strength: 30%
Dosage Form/Route: INJECTABLE;INJECTION
Application: A080516 | Product #001
Applicant: ELKINS SINN DIV AH ROBINS CO INC
Approved: Approved Prior to Jan 1, 1982 | RLD: No | RS: No | Type: DISCN